FAERS Safety Report 5800655-0 (Version None)
Quarter: 2008Q3

REPORT INFORMATION
  Report Type: 
  Country: None (occurrence: None)
  Receive Date: 20080703
  Receipt Date: 20080624
  Transmission Date: 20090109
  Serious: Yes (Other)
  Sender: FDA-Public Use
  Company Number: SE-BAXTER-2008BH006729

PATIENT
  Age: 75 Year
  Sex: Male

DRUGS (1)
  1. GAMMAGARD LIQUID [Suspect]
     Indication: CHRONIC LYMPHOCYTIC LEUKAEMIA
     Route: 042
     Dates: start: 20080521

REACTIONS (4)
  - BACK PAIN [None]
  - CHILLS [None]
  - COUGH [None]
  - DYSPNOEA [None]
